FAERS Safety Report 15096509 (Version 2)
Quarter: 2018Q3

REPORT INFORMATION
  Report Type: Spontaneous
  Country: AU (occurrence: AU)
  Receive Date: 20180702
  Receipt Date: 20180808
  Transmission Date: 20181010
  Serious: Yes (Hospitalization, Other)
  Sender: FDA-Public Use
  Company Number: AU-PFIZER INC-2018260672

PATIENT
  Age: 11 Year
  Sex: Male

DRUGS (5)
  1. SOLU?CORTEF [Concomitant]
     Active Substance: HYDROCORTISONE SODIUM SUCCINATE
     Indication: PROPHYLAXIS
     Dosage: UNK
  2. GENOTROPIN [Suspect]
     Active Substance: SOMATROPIN
     Indication: HYPOPITUITARISM
  3. CORTISOL [Concomitant]
     Active Substance: HYDROCORTISONE
     Indication: CORTISOL DEFICIENCY
     Dosage: UNK
  4. GENOTROPIN [Suspect]
     Active Substance: SOMATROPIN
     Indication: GROWTH HORMONE DEFICIENCY
     Dosage: 1.05 MG, 1X/DAY, 6 TIMES A WEEK
     Dates: start: 201610
  5. HYSONE /00028601/ [Concomitant]
     Active Substance: HYDROCORTISONE
     Dosage: 4 MG, 3X/DAY
     Dates: start: 201706

REACTIONS (5)
  - Adrenocortical insufficiency acute [Recovered/Resolved]
  - Injection site pain [Not Recovered/Not Resolved]
  - Drug dose omission [Unknown]
  - Frustration tolerance decreased [Not Recovered/Not Resolved]
  - Drug effect incomplete [Not Recovered/Not Resolved]

NARRATIVE: CASE EVENT DATE: 20180603
